FAERS Safety Report 15237625 (Version 1)
Quarter: 2018Q3

REPORT INFORMATION
  Report Type: Spontaneous
  Country: MX (occurrence: MX)
  Receive Date: 20180803
  Receipt Date: 20180803
  Transmission Date: 20181010
  Serious: Yes (Death)
  Sender: FDA-Public Use
  Company Number: MX-ACTELION-A-CH2018-176870

PATIENT
  Age: 96 Year
  Sex: Female

DRUGS (5)
  1. ZEPENDO [Suspect]
     Active Substance: MACITENTAN
     Indication: PULMONARY HYPERTENSION
     Dosage: 10 MG, QD
     Route: 048
     Dates: start: 20150812, end: 20180724
  2. TADALAFIL [Concomitant]
     Active Substance: TADALAFIL
     Indication: PULMONARY HYPERTENSION
     Dosage: 20 MG, UNK
     Route: 048
     Dates: end: 20180724
  3. DIGOXIN DIGOREGEN [Concomitant]
     Indication: CARDIAC FAILURE
     Dosage: 0.25 MG, OD
     Route: 048
     Dates: end: 20180724
  4. BUMETANIDE. [Concomitant]
     Active Substance: BUMETANIDE
     Indication: CARDIAC FAILURE
     Dosage: 1 MG, OD
     Route: 048
     Dates: end: 20180724
  5. SPIRONOLACTONE. [Concomitant]
     Active Substance: SPIRONOLACTONE
     Indication: CARDIAC FAILURE
     Dosage: 25 MG, OD
     Route: 048
     Dates: end: 20180724

REACTIONS (1)
  - Cardiac failure congestive [Fatal]

NARRATIVE: CASE EVENT DATE: 20180712
